FAERS Safety Report 24589187 (Version 4)
Quarter: 2025Q3

REPORT INFORMATION
  Report Type: Spontaneous
  Country: US (occurrence: US)
  Receive Date: 20241107
  Receipt Date: 20250714
  Transmission Date: 20251021
  Serious: No
  Sender: ELI LILLY AND COMPANY
  Company Number: US-ELI_LILLY_AND_COMPANY-US202411002900

PATIENT
  Age: 41 Year
  Sex: Female

DRUGS (1)
  1. VERZENIO [Suspect]
     Active Substance: ABEMACICLIB
     Indication: Breast cancer female
     Dosage: 150 MG, BID
     Route: 048
     Dates: start: 20240924

REACTIONS (5)
  - Product dose omission issue [Unknown]
  - Migraine [Unknown]
  - Headache [Unknown]
  - Diarrhoea [Not Recovered/Not Resolved]
  - Anaemia [Unknown]

NARRATIVE: CASE EVENT DATE: 20240901
